FAERS Safety Report 19792667 (Version 1)
Quarter: 2021Q3

REPORT INFORMATION
  Report Type: Spontaneous
  Country: PL (occurrence: PL)
  Receive Date: 20210906
  Receipt Date: 20210906
  Transmission Date: 20211014
  Serious: Yes (Death)
  Sender: FDA-Public Use
  Company Number: PL-MYLANLABS-2021M1058849

PATIENT
  Age: 12 Year
  Sex: Male

DRUGS (3)
  1. METHOTREXATE. [Suspect]
     Active Substance: METHOTREXATE
     Indication: ANGIOSARCOMA
     Dosage: 14 CYCLES
     Route: 065
  2. VINBLASTINE [Suspect]
     Active Substance: VINBLASTINE
     Indication: ANGIOSARCOMA
     Dosage: 14 CYCLES
     Route: 065
  3. PROPRANOLOL [Suspect]
     Active Substance: PROPRANOLOL HYDROCHLORIDE
     Indication: ANGIOSARCOMA
     Dosage: 14 CYCLES
     Route: 065

REACTIONS (3)
  - Product use in unapproved indication [Unknown]
  - Drug intolerance [Recovered/Resolved]
  - Angiosarcoma [Fatal]
